FAERS Safety Report 21737606 (Version 1)
Quarter: 2022Q4

REPORT INFORMATION
  Report Type: Spontaneous
  Country: US (occurrence: US)
  Receive Date: 20221216
  Receipt Date: 20221216
  Transmission Date: 20230113
  Serious: No
  Sender: FDA-Public Use
  Company Number: US-SPECGX-T202202157

PATIENT
  Sex: Female
  Weight: 77 kg

DRUGS (16)
  1. FENTANYL TRANSDERMAL SYSTEM [Suspect]
     Active Substance: FENTANYL
     Indication: Arthralgia
     Dosage: UNK, PREVIOUS MONTH
     Route: 062
     Dates: start: 202208
  2. FENTANYL TRANSDERMAL SYSTEM [Suspect]
     Active Substance: FENTANYL
     Indication: Back pain
     Dosage: ONE PATCH, EVERY 48 HOURS
     Route: 062
     Dates: start: 202209
  3. HYDROMORPHONE [Suspect]
     Active Substance: HYDROMORPHONE
     Indication: Back pain
     Dosage: 4 MILLIGRAM, (NO MORE THAN 4 TIMES A DAY (1 TAB ROUGHLY EVERY 6 HOURS)
     Route: 048
  4. HYDROMORPHONE [Suspect]
     Active Substance: HYDROMORPHONE
     Indication: Arthralgia
  5. MORPHINE [Suspect]
     Active Substance: MORPHINE
     Indication: Product used for unknown indication
     Dosage: UNK
     Route: 065
  6. DILAUDID [Suspect]
     Active Substance: HYDROMORPHONE HYDROCHLORIDE
     Indication: Product used for unknown indication
     Dosage: UNK
     Route: 065
  7. LIDOCAINE [Suspect]
     Active Substance: LIDOCAINE
     Indication: Back pain
     Dosage: UNK
     Route: 065
  8. LIDOCAINE [Suspect]
     Active Substance: LIDOCAINE
     Indication: Arthralgia
  9. LIPITOR [Suspect]
     Active Substance: ATORVASTATIN CALCIUM
     Indication: Blood cholesterol increased
     Dosage: 10 MILLIGRAM, QD
     Route: 065
  10. ZANAFLEX [Suspect]
     Active Substance: TIZANIDINE HYDROCHLORIDE
     Indication: Myalgia
     Dosage: 4 MILLIGRAM, QD
     Route: 065
  11. ALPRAZOLAM [Suspect]
     Active Substance: ALPRAZOLAM
     Indication: Sleep disorder
     Dosage: 50 MILLIGRAM, QD
     Route: 065
  12. QUERCETIN [Suspect]
     Active Substance: QUERCETIN
     Indication: Supplementation therapy
     Dosage: 50 MILLIGRAM, BID
     Route: 065
  13. DANTRIUM [Suspect]
     Active Substance: DANTROLENE SODIUM
     Indication: Product used for unknown indication
     Dosage: 100 MILLIGRAM
     Route: 065
  14. NICOTINAMIDE RIBOSIDE [Suspect]
     Active Substance: NICOTINAMIDE RIBOSIDE
     Indication: Supplementation therapy
     Dosage: 300 MILLIGRAM, QD
     Route: 065
  15. SUDAFED [Suspect]
     Active Substance: PSEUDOEPHEDRINE HYDROCHLORIDE
     Indication: Sinusitis
     Dosage: 10 MILLIGRAM, BID
     Route: 065
  16. TYLENOL [Suspect]
     Active Substance: ACETAMINOPHEN
     Indication: Sinus disorder
     Dosage: 500 MILLIGRAM, PRN (TWICE A DAY)
     Route: 065

REACTIONS (5)
  - Urticaria [Unknown]
  - Withdrawal syndrome [Unknown]
  - Drug hypersensitivity [Unknown]
  - Loss of personal independence in daily activities [Unknown]
  - Drug ineffective [Unknown]

NARRATIVE: CASE EVENT DATE: 20140101
